FAERS Safety Report 4263419-8 (Version None)
Quarter: 2004Q1

REPORT INFORMATION
  Report Type: 
  Country: None (occurrence: None)
  Receive Date: 20040104
  Receipt Date: 20040104
  Transmission Date: 20041129
  Serious: Yes (Death)
  Sender: FDA-Public Use
  Company Number: None

PATIENT
  Age: 22 Year
  Sex: Male
  Weight: 83.9154 kg

DRUGS (2)
  1. MORPHINE [Suspect]
     Indication: POST PROCEDURAL PAIN
     Dosage: 5 MG X 4/1 5ML IV
     Route: 042
     Dates: start: 20000509, end: 20000707
  2. FENTANYL [Suspect]
     Dosage: 500 X1 IV
     Route: 042
     Dates: start: 20000509, end: 20000707

REACTIONS (3)
  - ANOXIC ENCEPHALOPATHY [None]
  - MEDICATION ERROR [None]
  - RESPIRATORY ARREST [None]
